FAERS Safety Report 9383807 (Version 3)
Quarter: 2013Q3

REPORT INFORMATION
  Report Type: Spontaneous
  Country: IT (occurrence: IT)
  Receive Date: 20130704
  Receipt Date: 20130807
  Transmission Date: 20140515
  Serious: Yes (Hospitalization)
  Sender: FDA-Public Use
  Company Number: IT-BRISTOL-MYERS SQUIBB COMPANY-19057918

PATIENT
  Age: 85 Year
  Sex: Male

DRUGS (4)
  1. COUMADIN TABS 5 MG [Suspect]
     Indication: ATRIAL FIBRILLATION
     Dosage: 1DF:1 UNITS
     Route: 048
     Dates: start: 19930101, end: 20130522
  2. BISOPROLOL HEMIFUMARATE [Concomitant]
  3. LOSARTAN POTASSIUM + HCTZ [Concomitant]
  4. LANOXIN [Concomitant]

REACTIONS (3)
  - Oesophageal ulcer haemorrhage [Recovering/Resolving]
  - Erosive duodenitis [Recovering/Resolving]
  - Anaemia [Recovering/Resolving]
